FAERS Safety Report 12799917 (Version 2)
Quarter: 2017Q2

REPORT INFORMATION
  Report Type: Spontaneous
  Country: US (occurrence: US)
  Receive Date: 20160930
  Receipt Date: 20170424
  Transmission Date: 20170830
  Serious: No
  Sender: FDA-Public Use
  Company Number: US-TEVA-696840USA

PATIENT
  Age: 59 Year
  Sex: Female

DRUGS (15)
  1. LIPITOR [Concomitant]
     Active Substance: ATORVASTATIN CALCIUM
  2. VITAMIN D [Concomitant]
     Active Substance: CHOLECALCIFEROL
  3. AMPYRA [Suspect]
     Active Substance: DALFAMPRIDINE
     Route: 065
  4. TIZANIDINE. [Concomitant]
     Active Substance: TIZANIDINE
  5. BETHANECHOL [Concomitant]
     Active Substance: BETHANECHOL
  6. ATORVASTATIN [Concomitant]
     Active Substance: ATORVASTATIN
  7. METHENAMINE [Concomitant]
     Active Substance: METHENAMINE
  8. VESICARE [Concomitant]
     Active Substance: SOLIFENACIN SUCCINATE
  9. NORVASC [Concomitant]
     Active Substance: AMLODIPINE BESYLATE
  10. FLOMAX [Concomitant]
     Active Substance: TAMSULOSIN HYDROCHLORIDE
  11. MIRALAX [Concomitant]
     Active Substance: POLYETHYLENE GLYCOL 3350
  12. COPAXONE [Suspect]
     Active Substance: GLATIRAMER ACETATE
     Indication: MULTIPLE SCLEROSIS
     Route: 058
  13. BUPROPION. [Concomitant]
     Active Substance: BUPROPION
  14. ACTONEL [Concomitant]
     Active Substance: RISEDRONATE SODIUM
  15. CALCIUM [Concomitant]
     Active Substance: CALCIUM

REACTIONS (3)
  - Movement disorder [Unknown]
  - Bladder disorder [Unknown]
  - Somnolence [Unknown]

NARRATIVE: CASE EVENT DATE: 201608
